FAERS Safety Report 15284294 (Version 1)
Quarter: 2018Q3

REPORT INFORMATION
  Report Type: Spontaneous
  Country: US (occurrence: US)
  Receive Date: 20180816
  Receipt Date: 20180816
  Transmission Date: 20181010
  Serious: No
  Sender: FDA-Public Use
  Company Number: US-NEXGEN PHARMA, INC.-2053806

PATIENT
  Age: 42 Year
  Sex: Female

DRUGS (1)
  1. CHENODIOL. [Suspect]
     Active Substance: CHENODIOL
     Route: 048
     Dates: start: 20170307

REACTIONS (2)
  - Pain in extremity [Unknown]
  - Drug ineffective [Unknown]
